FAERS Safety Report 12817170 (Version 1)
Quarter: 2016Q4

REPORT INFORMATION
  Report Type: Spontaneous
  Country: US (occurrence: US)
  Receive Date: 20161005
  Receipt Date: 20161005
  Transmission Date: 20170207
  Serious: Yes (Hospitalization, Other)
  Sender: FDA-Public Use
  Company Number: None

PATIENT
  Age: 60 Year
  Sex: Female
  Weight: 97 kg

DRUGS (8)
  1. AMLODIPINE [Concomitant]
     Active Substance: AMLODIPINE BESYLATE
  2. ENALAPRIL [Concomitant]
     Active Substance: ENALAPRIL
  3. GADAVIST [Concomitant]
     Active Substance: GADOBUTROL
  4. ATORVASTATIN [Concomitant]
     Active Substance: ATORVASTATIN
  5. HALOPERIDOL. [Concomitant]
     Active Substance: HALOPERIDOL
  6. HYDRALAZINE [Concomitant]
     Active Substance: HYDRALAZINE HYDROCHLORIDE
  7. ACYCLOVIR. [Suspect]
     Active Substance: ACYCLOVIR
     Indication: HERPES SIMPLEX ENCEPHALITIS
     Dosage: ?          OTHER FREQUENCY:ONCE;?
     Route: 042
     Dates: start: 20160930, end: 20160930
  8. LORAZEPAM. [Concomitant]
     Active Substance: LORAZEPAM

REACTIONS (6)
  - Mental status changes [None]
  - Hypertension [None]
  - Haemodialysis [None]
  - Dyspnoea [None]
  - Fluid overload [None]
  - Blood creatinine increased [None]

NARRATIVE: CASE EVENT DATE: 20160930
